FAERS Safety Report 6199300-7 (Version None)
Quarter: 2009Q2

REPORT INFORMATION
  Report Type: 
  Country: None (occurrence: None)
  Receive Date: 20090522
  Receipt Date: 20090326
  Transmission Date: 20091009
  Serious: Yes (Other)
  Sender: FDA-Public Use
  Company Number: IE-PFIZER INC-2008031534

PATIENT
  Age: 64 Year

DRUGS (1)
  1. CHAMPIX [Suspect]
     Indication: SMOKING CESSATION THERAPY
     Route: 048
     Dates: start: 20080102, end: 20080325

REACTIONS (10)
  - CRYING [None]
  - DEPRESSED MOOD [None]
  - DRY MOUTH [None]
  - EMOTIONAL DISORDER [None]
  - HEADACHE [None]
  - IRRITABILITY [None]
  - MUSCULOSKELETAL STIFFNESS [None]
  - MYALGIA [None]
  - NAUSEA [None]
  - WITHDRAWAL SYNDROME [None]
